FAERS Safety Report 5154035-4 (Version None)
Quarter: 2006Q4

REPORT INFORMATION
  Report Type: 
  Country: None (occurrence: None)
  Receive Date: 20061120
  Receipt Date: 20040812
  Transmission Date: 20070319
  Serious: Yes (Hospitalization, Other)
  Sender: FDA-Public Use
  Company Number: 200416123US

PATIENT
  Sex: Female
  Weight: 74.54 kg

DRUGS (20)
  1. LOVENOX [Suspect]
     Indication: DEEP VEIN THROMBOSIS
     Route: 058
     Dates: start: 20020731, end: 20020801
  2. LOVENOX [Suspect]
     Route: 058
     Dates: start: 20030219, end: 20030221
  3. LOVENOX [Suspect]
     Dosage: DOSE: UNK
     Dates: start: 20030224
  4. LOVENOX [Suspect]
     Route: 058
     Dates: end: 20030701
  5. LOVENOX [Suspect]
     Route: 058
     Dates: start: 20030728, end: 20030728
  6. LOVENOX [Suspect]
     Route: 058
     Dates: start: 20060728
  7. NUBAIN [Concomitant]
     Route: 042
     Dates: start: 20030727, end: 20030727
  8. PITOCIN [Concomitant]
     Dosage: DOSE: 20/1000CC LR
     Route: 042
     Dates: start: 20030727, end: 20030727
  9. PERCOCET                           /00867901/ [Concomitant]
     Dosage: DOSE: 2 TABLETS
     Dates: start: 20030727
  10. XANAX [Concomitant]
  11. DEMEROL [Concomitant]
     Dates: start: 20030728
  12. DILAUDID                           /00080902/ [Concomitant]
     Dosage: FREQUENCY: EVERY 6 TO 8 HOURS
     Route: 042
     Dates: start: 20030728, end: 20030728
  13. ATIVAN [Concomitant]
     Route: 042
  14. PHENERGAN [Concomitant]
     Route: 030
     Dates: start: 20030728
  15. TYLENOL [Concomitant]
     Route: 048
     Dates: start: 20030727
  16. VITAMINS [Concomitant]
     Dosage: DOSE: UNK
  17. COUMADIN [Concomitant]
     Dosage: DOSE: UNK
     Dates: start: 20020701, end: 20021001
  18. ACIDOPHILUS [Concomitant]
  19. AMBIEN [Concomitant]
  20. ZOFRAN [Concomitant]
     Dosage: DOSE: UNK
     Dates: start: 20031001

REACTIONS (30)
  - ALANINE AMINOTRANSFERASE INCREASED [None]
  - ARTHRALGIA [None]
  - ASPARTATE AMINOTRANSFERASE INCREASED [None]
  - BLOOD ALBUMIN DECREASED [None]
  - BLOOD ALKALINE PHOSPHATASE INCREASED [None]
  - BLOOD MAGNESIUM DECREASED [None]
  - CHORIOAMNIONITIS [None]
  - CONTUSION [None]
  - DRUG EXPOSURE DURING PREGNANCY [None]
  - FATIGUE [None]
  - GINGIVAL BLEEDING [None]
  - HAEMATOCRIT DECREASED [None]
  - HAEMOGLOBIN DECREASED [None]
  - HAEMORRHAGE [None]
  - HOSPITALISATION [None]
  - INJECTION SITE IRRITATION [None]
  - LETHARGY [None]
  - LIVER FUNCTION TEST ABNORMAL [None]
  - MUSCULOSKELETAL CHEST PAIN [None]
  - PHLEBITIS [None]
  - PLACENTAL INFARCTION [None]
  - PLACENTAL INSUFFICIENCY [None]
  - PLATELET COUNT INCREASED [None]
  - PLEURISY [None]
  - RED BLOOD CELL MORPHOLOGY ABNORMAL [None]
  - RIB FRACTURE [None]
  - SKELETAL INJURY [None]
  - UMBILICAL CORD ABNORMALITY [None]
  - VASCULITIS [None]
  - WHITE BLOOD CELL COUNT INCREASED [None]
